FAERS Safety Report 8842208 (Version 2)
Quarter: 2012Q4

REPORT INFORMATION
  Report Type: 
  Country: JP (occurrence: JP)
  Receive Date: 20121016
  Receipt Date: 20121022
  Transmission Date: 20130627
  Serious: Yes (Other)
  Sender: FDA-Public Use
  Company Number: JP-PFIZER INC-2012244664

PATIENT
  Age: 50 Year
  Sex: Male

DRUGS (5)
  1. CORTRIL [Suspect]
     Indication: HYPONATRAEMIA
     Dosage: 5 mg, UNK
     Route: 048
  2. CORTRIL [Suspect]
     Dosage: 10 mg, UNK
     Route: 048
  3. CORTRIL [Suspect]
     Dosage: gradually increased to 20 mg by day 5
     Route: 048
  4. FUROSEMIDE [Concomitant]
     Dosage: UNK
  5. HYPERTONIC SALINE [Concomitant]
     Dosage: UNK

REACTIONS (2)
  - Diabetes insipidus [Unknown]
  - Therapeutic response delayed [Recovered/Resolved]
